FAERS Safety Report 6535495-0 (Version None)
Quarter: 2010Q1

REPORT INFORMATION
  Report Type: 
  Country: None (occurrence: None)
  Receive Date: 20100111
  Receipt Date: 20100111
  Transmission Date: 20100710
  Serious: Yes (Hospitalization)
  Sender: FDA-Public Use
  Company Number: None

PATIENT
  Age: 64 Year
  Sex: Female
  Weight: 81.6475 kg

DRUGS (3)
  1. LIPITOR [Suspect]
     Indication: BLOOD CHOLESTEROL INCREASED
     Dosage: 10 MG DAILY
     Dates: start: 19980101, end: 20100101
  2. VYTORIN [Suspect]
     Dosage: 40 MG DAILY
     Dates: start: 19980101, end: 20100101
  3. PRAVACHOL [Suspect]
     Dates: start: 19980101, end: 20100101

REACTIONS (1)
  - AMNESIA [None]
